FAERS Safety Report 9107049 (Version 2)
Quarter: 2013Q1

REPORT INFORMATION
  Report Type: Report from Study
  Country: IL (occurrence: IL)
  Receive Date: 20130221
  Receipt Date: 20130319
  Transmission Date: 20140127
  Serious: Yes (Hospitalization)
  Sender: FDA-Public Use
  Company Number: IL-BAYER-2013-022467

PATIENT
  Age: 44 Year
  Sex: Male

DRUGS (1)
  1. BETAFERON [Suspect]

REACTIONS (6)
  - Anger [None]
  - Depression [None]
  - Gait disturbance [None]
  - Muscular weakness [None]
  - Gait spastic [None]
  - Mental disorder [Recovered/Resolved]
